FAERS Safety Report 18640259 (Version 1)
Quarter: 2020Q4

REPORT INFORMATION
  Report Type: Report from Study
  Country: CO (occurrence: CO)
  Receive Date: 20201220
  Receipt Date: 20201220
  Transmission Date: 20210114
  Serious: Yes (Hospitalization, Other)
  Sender: FDA-Public Use
  Company Number: CO-UCBSA-2020052454

PATIENT
  Age: 40 Year
  Sex: Male

DRUGS (8)
  1. QUETIAPINA [QUETIAPINE] [Concomitant]
     Active Substance: QUETIAPINE
     Indication: EPILEPSY
     Dosage: 75 MILLIGRAM, ONCE DAILY (QD)
     Route: 048
  2. METOPROLOL. [Concomitant]
     Active Substance: METOPROLOL
     Indication: EPILEPSY
     Dosage: 100 MILLIGRAM, ONCE DAILY (QD)
     Route: 048
  3. BRIVARACETAM EP [Suspect]
     Active Substance: BRIVARACETAM
     Indication: EPILEPSY
     Dosage: 50 MILLIGRAM, 2X/DAY (BID)
     Route: 048
     Dates: start: 20201102, end: 20201104
  4. LOSARTAN. [Concomitant]
     Active Substance: LOSARTAN
     Indication: EPILEPSY
     Dosage: 50 MILLIGRAM, 2X/DAY (BID)
     Route: 048
  5. PHENOBARBITAL. [Concomitant]
     Active Substance: PHENOBARBITAL
     Indication: EPILEPSY
     Dosage: 200 MILLIGRAM, ONCE DAILY (QD)
     Route: 048
  6. TRAZODONA [TRAZODONE] [Concomitant]
     Active Substance: TRAZODONE HYDROCHLORIDE
     Indication: EPILEPSY
     Dosage: 100 MILLIGRAM, ONCE DAILY (QD)
     Route: 048
  7. SERTRALINE [Concomitant]
     Active Substance: SERTRALINE HYDROCHLORIDE
     Indication: EPILEPSY
     Dosage: 100 MILLIGRAM, ONCE DAILY (QD)
     Route: 048
  8. VALPROIC ACID. [Concomitant]
     Active Substance: VALPROIC ACID
     Indication: EPILEPSY
     Dosage: 500 MILLIGRAM, ONCE DAILY (QD)
     Route: 048

REACTIONS (2)
  - Seizure [Recovered/Resolved]
  - Toxicity to various agents [Recovered/Resolved]

NARRATIVE: CASE EVENT DATE: 20201104
